FAERS Safety Report 8494590 (Version 2)
Quarter: 2012Q4

REPORT INFORMATION
  Report Type: 
  Country: JP (occurrence: JP)
  Receive Date: 20120404
  Receipt Date: 20121010
  Transmission Date: 20130627
  Serious: Yes (Other)
  Sender: FDA-Public Use
  Company Number: PHHY2012JP027725

PATIENT
  Age: 64 Year
  Sex: Female

DRUGS (5)
  1. PREDNISOLONE [Suspect]
     Indication: DRUG RASH WITH EOSINOPHILIA AND SYSTEMIC SYMPTOMS
     Dosage: 40 mg, per day
     Route: 048
  2. PREDNISOLONE [Suspect]
     Dosage: 30 mg, per day
     Route: 048
  3. PREDNISOLONE [Suspect]
     Dosage: 20 mg, per day
     Route: 048
  4. PREDNISOLONE [Suspect]
     Dosage: 20-40 mg, per day
     Route: 048
  5. PREDNISOLONE [Suspect]
     Dosage: 5 mg, per day
     Route: 048

REACTIONS (5)
  - Arthritis [Not Recovered/Not Resolved]
  - Erythema [Not Recovered/Not Resolved]
  - Arthralgia [Not Recovered/Not Resolved]
  - Joint swelling [Not Recovered/Not Resolved]
  - Rash maculo-papular [Unknown]
